FAERS Safety Report 20339795 (Version 1)
Quarter: 2022Q1

REPORT INFORMATION
  Report Type: Spontaneous
  Country: US (occurrence: US)
  Receive Date: 20220117
  Receipt Date: 20220117
  Transmission Date: 20220423
  Serious: No
  Sender: FDA-Public Use
  Company Number: US-SA-SAC20220112000405

PATIENT
  Age: 57 Year
  Sex: Female

DRUGS (12)
  1. DUPIXENT [Suspect]
     Active Substance: DUPILUMAB
     Indication: Dermatitis atopic
     Dosage: 300 MG, QOW
     Route: 058
     Dates: start: 20210504
  2. ATROVENT HFA [Concomitant]
     Active Substance: IPRATROPIUM BROMIDE
  3. CLOBETASOL [Concomitant]
     Active Substance: CLOBETASOL
  4. FLUTICASONE [Concomitant]
     Active Substance: FLUTICASONE
  5. HYDROCODONE BITARTRATE AND ACETAMINOPHEN [Concomitant]
     Active Substance: ACETAMINOPHEN\HYDROCODONE BITARTRATE
  6. KENALOG [Concomitant]
     Active Substance: TRIAMCINOLONE ACETONIDE
  7. PROAIR HFA [Concomitant]
     Active Substance: ALBUTEROL SULFATE
  8. PROGESTERONE [Concomitant]
     Active Substance: PROGESTERONE
  9. TACROLIMUS [Concomitant]
     Active Substance: TACROLIMUS
  10. XALATAN [Concomitant]
     Active Substance: LATANOPROST
  11. VITAMINS NOS [Concomitant]
     Active Substance: VITAMINS
  12. ZYRTEC [Concomitant]
     Active Substance: CETIRIZINE HYDROCHLORIDE

REACTIONS (2)
  - Dermatitis atopic [Unknown]
  - Rash [Unknown]
